FAERS Safety Report 12651952 (Version 1)
Quarter: 2016Q3

REPORT INFORMATION
  Report Type: Spontaneous
  Country: FR (occurrence: FR)
  Receive Date: 20160815
  Receipt Date: 20160815
  Transmission Date: 20161109
  Serious: Yes (Hospitalization, Other)
  Sender: FDA-Public Use
  Company Number: FR-SHIRE-FR201610058

PATIENT
  Age: 36 Year
  Sex: Female

DRUGS (2)
  1. ASPEGIC [Concomitant]
     Active Substance: ASPIRIN DL-LYSINE
     Indication: ESSENTIAL THROMBOCYTHAEMIA
     Dosage: 100 MG, 1X/DAY:QD
     Route: 048
     Dates: start: 200009
  2. XAGRID [Suspect]
     Active Substance: ANAGRELIDE HYDROCHLORIDE
     Indication: ESSENTIAL THROMBOCYTHAEMIA
     Dosage: 1.5 MG, 1X/DAY:QD
     Route: 048
     Dates: start: 20141117

REACTIONS (5)
  - Staphylococcal infection [Recovered/Resolved]
  - Abdominal pain [Unknown]
  - Depression [Not Recovered/Not Resolved]
  - Pyelonephritis [Recovered/Resolved]
  - Asthenia [Unknown]

NARRATIVE: CASE EVENT DATE: 20160725
